FAERS Safety Report 8337238-7 (Version None)
Quarter: 2012Q2

REPORT INFORMATION
  Report Type: 
  Country: None (occurrence: None)
  Receive Date: 20120504
  Receipt Date: 20120425
  Transmission Date: 20120825
  Serious: Yes (Other)
  Sender: FDA-Public Use
  Company Number: US-MYLANLABS-2012S1007362

PATIENT
  Age: 19 Year
  Sex: Male
  Weight: 74.84 kg

DRUGS (3)
  1. AMNESTEEM [Suspect]
     Route: 048
     Dates: end: 20120403
  2. AMNESTEEM [Suspect]
     Indication: ACNE CYSTIC
     Route: 048
     Dates: start: 20120104
  3. CLARAVIS [Suspect]
     Indication: ACNE CYSTIC
     Route: 048

REACTIONS (1)
  - SUICIDAL IDEATION [None]
